FAERS Safety Report 8858623 (Version 2)
Quarter: 2015Q3

REPORT INFORMATION
  Report Type: Report from Study
  Country: US (occurrence: US)
  Receive Date: 20121024
  Receipt Date: 20150908
  Transmission Date: 20151125
  Serious: Yes (Death)
  Sender: FDA-Public Use
  Company Number: US-ROCHE-1133257

PATIENT
  Age: 53 Year
  Sex: Male

DRUGS (3)
  1. RAPTIVA [Suspect]
     Active Substance: EFALIZUMAB
     Indication: PUSTULAR PSORIASIS
  2. RAPTIVA [Suspect]
     Active Substance: EFALIZUMAB
     Indication: BREAST CANCER FEMALE
     Route: 065
  3. RAPTIVA [Suspect]
     Active Substance: EFALIZUMAB
     Indication: PSORIASIS

REACTIONS (1)
  - Death [Fatal]

NARRATIVE: CASE EVENT DATE: 20081003
